FAERS Safety Report 8112857-1 (Version None)
Quarter: 2012Q1

REPORT INFORMATION
  Report Type: 
  Country: None (occurrence: None)
  Receive Date: 20120203
  Receipt Date: 20120127
  Transmission Date: 20120608
  Serious: Yes (Disabling, Other)
  Sender: FDA-Public Use
  Company Number: JP-ABBOTT-12P-087-0898917-00

PATIENT
  Sex: Male

DRUGS (5)
  1. LANSOPRAZOLE [Concomitant]
     Indication: GASTROINTESTINAL DISORDER
     Route: 048
  2. HUMIRA [Suspect]
     Dates: start: 20110216, end: 20110216
  3. ITRACONAZOLE [Concomitant]
     Indication: SYSTEMIC CANDIDA
     Route: 048
  4. HUMIRA [Suspect]
     Dates: start: 20110302, end: 20110914
  5. HUMIRA [Suspect]
     Indication: CROHN'S DISEASE
     Route: 058
     Dates: start: 20110202, end: 20110202

REACTIONS (6)
  - FISTULA [None]
  - PYREXIA [None]
  - SMALL INTESTINAL OBSTRUCTION [None]
  - ENTEROCOLITIS [None]
  - ABDOMINAL NEOPLASM [None]
  - INTESTINAL DILATATION [None]
